FAERS Safety Report 8956846 (Version 2)
Quarter: 2013Q3

REPORT INFORMATION
  Report Type: Report from Study
  Country: CA (occurrence: CA)
  Receive Date: 20121211
  Receipt Date: 20130726
  Transmission Date: 20140515
  Serious: Yes (Other)
  Sender: FDA-Public Use
  Company Number: CA-ELI_LILLY_AND_COMPANY-CA201212000030

PATIENT
  Age: 65 Year
  Sex: Female
  Weight: 29.48 kg

DRUGS (22)
  1. TERIPARATIDE [Suspect]
     Indication: OSTEOPOROSIS
     Dosage: 20 UG, QD
     Route: 058
     Dates: start: 20110625
  2. DILAUDID                                /CAN/ [Concomitant]
     Dosage: UNK, UNKNOWN
     Route: 065
  3. FENTANYL [Concomitant]
     Dosage: UNK, UNKNOWN
     Route: 065
  4. ESTROGEN [Concomitant]
     Dosage: UNK, UNKNOWN
     Route: 065
  5. PROGESTERONE [Concomitant]
     Dosage: UNK, UNKNOWN
     Route: 065
  6. CYMBALTA [Concomitant]
     Dosage: UNK, UNKNOWN
     Route: 065
  7. PREDNISONE [Concomitant]
     Dosage: UNK, UNKNOWN
     Route: 065
  8. ZOFRAN [Concomitant]
     Dosage: UNK, UNKNOWN
     Route: 065
  9. VALTREX [Concomitant]
     Dosage: UNK, UNKNOWN
     Route: 065
  10. IMODIUM [Concomitant]
     Dosage: UNK, UNKNOWN
     Route: 065
  11. IMIPRAMINE [Concomitant]
     Dosage: UNK, UNKNOWN
     Route: 065
  12. HUMIRA [Concomitant]
     Dosage: UNK, UNKNOWN
     Route: 065
  13. DOMPERIDONE [Concomitant]
     Dosage: UNK, UNKNOWN
     Route: 065
  14. METHOTREXATE [Concomitant]
     Dosage: UNK, UNKNOWN
     Route: 005
  15. VITAMIN B12 [Concomitant]
     Dosage: UNK, UNKNOWN
     Route: 065
  16. FOLIC ACID [Concomitant]
     Dosage: UNK, UNKNOWN
     Route: 065
  17. MULTIVITAMIN [Concomitant]
     Dosage: UNK, UNKNOWN
     Route: 065
  18. OCUVITE [Concomitant]
     Dosage: UNK, UNKNOWN
     Route: 065
  19. VITAMIN D [Concomitant]
     Dosage: UNK, UNKNOWN
     Route: 065
  20. ZINC [Concomitant]
     Dosage: UNK, UNKNOWN
     Route: 065
  21. ASPIRIN [Concomitant]
     Dosage: UNK, UNKNOWN
     Route: 065
  22. PREVACID [Concomitant]

REACTIONS (5)
  - Ankle fracture [Recovered/Resolved]
  - Fall [Recovered/Resolved]
  - Syncope [Not Recovered/Not Resolved]
  - Multiple fractures [Recovered/Resolved]
  - Medication error [Unknown]
